FAERS Safety Report 4295930-8 (Version None)
Quarter: 2004Q1

REPORT INFORMATION
  Report Type: 
  Country: None (occurrence: None)
  Receive Date: 20040216
  Receipt Date: 20030819
  Transmission Date: 20041129
  Serious: No
  Sender: FDA-Public Use
  Company Number: US-GLAXOSMITHKLINE-A0422642A

PATIENT
  Age: 76 Year
  Sex: Female

DRUGS (5)
  1. LAMICTAL [Suspect]
     Indication: EPILEPSY
     Route: 048
  2. ATIVAN [Concomitant]
  3. RISPERDAL [Concomitant]
  4. PROTONIX [Concomitant]
  5. ERYTHROMYCIN [Concomitant]
     Dosage: 300MG THREE TIMES PER DAY

REACTIONS (1)
  - SEBORRHOEIC DERMATITIS [None]
